FAERS Safety Report 16519463 (Version 2)
Quarter: 2019Q3

REPORT INFORMATION
  Report Type: Spontaneous
  Country: DE (occurrence: DE)
  Receive Date: 20190702
  Receipt Date: 20190919
  Transmission Date: 20191004
  Serious: Yes (Other)
  Sender: FDA-Public Use
  Company Number: DE-JNJFOC-20151121091

PATIENT
  Age: 34 Year
  Sex: Female
  Weight: 120 kg

DRUGS (10)
  1. CETIRIZINE HYDROCHLORIDE. [Suspect]
     Active Substance: CETIRIZINE HYDROCHLORIDE
     Indication: HYPERSENSITIVITY
     Dosage: GESTATION PERIOD AT TIME OF EXPOSURE WAS IN FIRST TRIMESTER AND TOOK UNTIL WEEK 20.
     Route: 048
     Dates: start: 20140511, end: 20140928
  2. TRAUMEEL [Concomitant]
     Indication: PAIN
     Route: 003
  3. AGOMELATINE [Concomitant]
     Active Substance: AGOMELATINE
     Indication: DEPRESSION
     Dosage: GESTATIONAL WEEK 4 AND 4 DAYS
     Route: 065
  4. BISOPROLOL [Suspect]
     Active Substance: BISOPROLOL
     Indication: HYPERTENSION
     Dosage: GESTATION PERIOD AT TIME OF EXPOSURE WAS IN FIRST TRIMESTER,5 MG, 2X/DAY (BID)
     Route: 048
     Dates: start: 20140511, end: 20150220
  5. VALDOXAN [Concomitant]
     Active Substance: AGOMELATINE
     Indication: DEPRESSION
     Dosage: GESTATION PERIOD AT TIME OF EXPOSURE WAS IN FIRST TRIMESTER.
     Route: 048
     Dates: start: 20140511, end: 20140612
  6. NOVAMINSULFON [Concomitant]
     Active Substance: METAMIZOLE
     Indication: FIBROMYALGIA
     Dosage: GESTATION PERIOD AT TIME OF EXPOSURE WAS IN FIRST TRIMESTER
     Route: 048
     Dates: start: 20140511, end: 20140617
  7. ALL OTHER THERAPEUTIC PRODUCTS [Concomitant]
     Active Substance: UNSPECIFIED INGREDIENT
     Indication: PAIN
     Route: 003
  8. ALL OTHER THERAPEUTIC PRODUCTS [Concomitant]
     Active Substance: UNSPECIFIED INGREDIENT
     Indication: PROPHYLAXIS OF NEURAL TUBE DEFECT
     Route: 048
     Dates: start: 20140612, end: 20150220
  9. FEMIBION                           /01597501/ [Concomitant]
     Active Substance: CALCIUM PHOSPHATE, DIBASIC, ANHYDROUS\FERROUS SUCCINATE\MAGNESIUM HYDROXIDE
     Indication: PROPHYLAXIS OF NEURAL TUBE DEFECT
     Route: 048
     Dates: start: 20140612, end: 20150220
  10. METAMIZOLE [Concomitant]
     Active Substance: METAMIZOLE
     Indication: FIBROMYALGIA
     Dosage: DOSE TILL GESTATIONAL WEEK 5 AND 2 DAYS
     Route: 065

REACTIONS (2)
  - Maternal exposure during pregnancy [Unknown]
  - Upper respiratory tract infection [Unknown]

NARRATIVE: CASE EVENT DATE: 20140511
